FAERS Safety Report 11320682 (Version 1)
Quarter: 2015Q3

REPORT INFORMATION
  Report Type: Spontaneous
  Country: US (occurrence: US)
  Receive Date: 20150729
  Receipt Date: 20150729
  Transmission Date: 20151125
  Serious: No
  Sender: FDA-Public Use
  Company Number: US-BRISTOL-MYERS SQUIBB COMPANY-BMS-2015-049047

PATIENT
  Sex: Female

DRUGS (1)
  1. SPRYCEL [Suspect]
     Active Substance: DASATINIB
     Indication: CHRONIC MYELOID LEUKAEMIA
     Dosage: 100 MG, QD
     Route: 048
     Dates: start: 20150326

REACTIONS (9)
  - Nausea [Unknown]
  - Confusional state [Unknown]
  - Headache [Unknown]
  - Diarrhoea [Unknown]
  - Bone pain [Unknown]
  - Skin reaction [Unknown]
  - Amnesia [Unknown]
  - Contusion [Unknown]
  - Fatigue [Unknown]
